FAERS Safety Report 20069520 (Version 1)
Quarter: 2021Q4

REPORT INFORMATION
  Report Type: Spontaneous
  Country: GB (occurrence: GB)
  Receive Date: 20211115
  Receipt Date: 20211115
  Transmission Date: 20220303
  Serious: Yes (Other)
  Sender: FDA-Public Use
  Company Number: None

PATIENT
  Age: 47 Year
  Sex: Female
  Weight: 55.8 kg

DRUGS (7)
  1. LANSOPRAZOLE [Suspect]
     Active Substance: LANSOPRAZOLE
     Indication: Product used for unknown indication
     Dosage: 30 MILLIGRAM, QD (EACH MORNING)
     Dates: start: 20211101
  2. DOXYCYCLINE [Concomitant]
     Active Substance: DOXYCYCLINE
     Dosage: 100 MILLIGRAM (TWO TO BE TAKEN ON THE FIRST DAY THEN ONE TO BE TAKEN EACH DAY)
     Dates: start: 20210927
  3. FAMOTIDINE [Concomitant]
     Active Substance: FAMOTIDINE
     Dosage: 20 MILLIGRAM, QD (AT NIGHT)
     Dates: start: 20211104
  4. MEBEVERINE [Concomitant]
     Active Substance: MEBEVERINE
     Dosage: 135 MILLIGRAM, TID (TWENTY MINUTES BEFORE FOOD)
     Dates: start: 20211104
  5. PREDNISOLONE [Concomitant]
     Active Substance: PREDNISOLONE
     Dosage: 5 MILLIGRAM, 8XD
     Dates: start: 20210927, end: 20211026
  6. PREDNISOLONE [Concomitant]
     Active Substance: PREDNISOLONE
     Dosage: 5 MILLIGRAM, 8XD (EIGHT TO BE TAKEN EACH DAY TO MAKE 10 DAY COURSE.
     Dates: start: 20211001
  7. SEBCO [Concomitant]
     Dosage: 100 GRAM (APPLY TO TO THREE TIMES A WEEK TO SCALP. LEAVE ON FOR ONE HOUR THEN RINSE OFF)
     Dates: start: 20210809, end: 20210921

REACTIONS (1)
  - Swelling face [Unknown]

NARRATIVE: CASE EVENT DATE: 20211101
